FAERS Safety Report 17150394 (Version 2)
Quarter: 2020Q1

REPORT INFORMATION
  Report Type: Spontaneous
  Country: US (occurrence: US)
  Receive Date: 20191213
  Receipt Date: 20200106
  Transmission Date: 20200409
  Serious: Yes (Hospitalization, Other)
  Sender: FDA-Public Use
  Company Number: US-GLAXOSMITHKLINE-US2019225080

PATIENT
  Age: 76 Year
  Sex: Female
  Weight: 86.17 kg

DRUGS (1)
  1. ALLI [Suspect]
     Active Substance: ORLISTAT
     Indication: WEIGHT LOSS DIET
     Dosage: UNK
     Dates: start: 20190228, end: 20191106

REACTIONS (15)
  - Cerebral disorder [Unknown]
  - Taste disorder [Unknown]
  - Dysarthria [Not Recovered/Not Resolved]
  - Cerebrovascular accident [Unknown]
  - Discomfort [Unknown]
  - Drug ineffective [Unknown]
  - Peripheral swelling [Unknown]
  - Balance disorder [Unknown]
  - Movement disorder [Unknown]
  - Fall [Unknown]
  - Fluid retention [Unknown]
  - Paralysis [Unknown]
  - Gait inability [Not Recovered/Not Resolved]
  - Feeling of despair [Unknown]
  - Hypoaesthesia [Unknown]

NARRATIVE: CASE EVENT DATE: 20191108
